FAERS Safety Report 6019900-4 (Version None)
Quarter: 2008Q4

REPORT INFORMATION
  Report Type: 
  Country: None (occurrence: None)
  Receive Date: 20081222
  Receipt Date: 20081217
  Transmission Date: 20090506
  Serious: Yes (Death, Life-Threatening)
  Sender: FDA-Public Use
  Company Number: CLOF-1000045

PATIENT
  Age: 15 Year
  Sex: Male
  Weight: 75.5 kg

DRUGS (27)
  1. CLOLAR [Suspect]
     Indication: ACUTE MYELOID LEUKAEMIA
     Dosage: 38 MG, QDX5, INTRAVENOUS
     Route: 042
     Dates: start: 20080103, end: 20080107
  2. BUSULFAN (BUSULFAN) UNKNOWN [Suspect]
     Indication: ACUTE MYELOID LEUKAEMIA
     Dosage: 3.2 MG/KG, QD, INTRAVENOUS
     Route: 042
     Dates: start: 20080104, end: 20080105
  3. ATIVAN [Concomitant]
  4. HEPARIN [Concomitant]
  5. OXYGEN (OXYGEN) [Concomitant]
  6. POTASSIUM CHLORIDE [Concomitant]
  7. LASIX [Concomitant]
  8. MORPHINE [Concomitant]
  9. OXYCONTIN [Concomitant]
  10. ZOFRAN [Concomitant]
  11. SODIUM CHLORIDE 0.9% [Concomitant]
  12. PHYTONADIONE [Concomitant]
  13. PANTOPRAZOLE SODIUM [Concomitant]
  14. DEXAMETHASONE SODIUM PHOSPHATE [Concomitant]
  15. OXYCODONE (OXYCODONE, PARACETAMOL) [Concomitant]
  16. POTASSIUM CHLORIDE [Concomitant]
  17. MICAFUNGIN (MICAFUNGIN) [Concomitant]
  18. URSODIOL [Concomitant]
  19. LEVOFLOXACIN [Concomitant]
  20. ACYCLOVIR [Concomitant]
  21. ERGOCALCIFEROL [Concomitant]
  22. VITAMIN E (TOCOPHERYL ACETATE) [Concomitant]
  23. METRONIDAZOLE [Concomitant]
  24. CALCIUM CITRATE (CALCIUM CITRATE) [Concomitant]
  25. FUROSEMIDE [Concomitant]
  26. PHENYTOIN [Concomitant]
  27. ACETAMINOPHEN [Concomitant]

REACTIONS (2)
  - HYPERCOAGULATION [None]
  - PULMONARY EMBOLISM [None]
